FAERS Safety Report 12141061 (Version 1)
Quarter: 2016Q1

REPORT INFORMATION
  Report Type: Spontaneous
  Country: US (occurrence: US)
  Receive Date: 20160303
  Receipt Date: 20160303
  Transmission Date: 20160526
  Serious: No
  Sender: FDA-Public Use
  Company Number: US-PFIZER INC-2016120023

PATIENT
  Age: 79 Year
  Sex: Female
  Weight: 42 kg

DRUGS (1)
  1. SKELAXIN [Suspect]
     Active Substance: METAXALONE
     Dosage: 800 MG, EVERY SIX HOURS AS NEEDED
     Dates: start: 20151003, end: 20151102

REACTIONS (3)
  - Drug ineffective [Unknown]
  - Somnolence [Unknown]
  - Nausea [Unknown]
